FAERS Safety Report 7465710-0 (Version None)
Quarter: 2011Q2

REPORT INFORMATION
  Report Type: 
  Country: None (occurrence: None)
  Receive Date: 20110509
  Receipt Date: 20110428
  Transmission Date: 20111010
  Serious: Yes (Death)
  Sender: FDA-Public Use
  Company Number: B0715338A

PATIENT
  Sex: Female

DRUGS (3)
  1. BUPROPION HYDROCHLORIDE [Suspect]
     Dosage: 150MG PER DAY
     Route: 065
  2. BECLOMETHASONE DIPROPIONATE [Suspect]
     Route: 065
  3. ATROVENT [Suspect]
     Route: 065

REACTIONS (2)
  - COMPLETED SUICIDE [None]
  - INTENTIONAL OVERDOSE [None]
